FAERS Safety Report 6769418-6 (Version None)
Quarter: 2010Q2

REPORT INFORMATION
  Report Type: 
  Country: None (occurrence: None)
  Receive Date: 20100615
  Receipt Date: 20100607
  Transmission Date: 20101027
  Serious: Yes (Hospitalization)
  Sender: FDA-Public Use
  Company Number: AU-B.I. PHARMACEUTICALS,INC./RIDGEFIELD-2010-DE-03075GD

PATIENT

DRUGS (1)
  1. MELOXICAM [Suspect]

REACTIONS (1)
  - HAEMORRHAGIC STROKE [None]
